FAERS Safety Report 7458966-1 (Version None)
Quarter: 2011Q2

REPORT INFORMATION
  Report Type: 
  Country: None (occurrence: None)
  Receive Date: 20110504
  Receipt Date: 20110427
  Transmission Date: 20111010
  Serious: Yes (Other)
  Sender: FDA-Public Use
  Company Number: US-RB-026599-11

PATIENT
  Sex: Female

DRUGS (4)
  1. SYNTHROID [Concomitant]
     Indication: HYPOTHYROIDISM
     Dosage: TAKES 88 MCG DAILY
     Route: 065
  2. LEXAPRO [Concomitant]
     Indication: DEPRESSION
     Route: 065
  3. SUBOXONE [Suspect]
     Indication: DRUG DEPENDENCE
     Dosage: SUBLINGUAL FILM
     Route: 060
     Dates: start: 20110414, end: 20110424
  4. IBUPROFEN [Concomitant]
     Indication: ARTHRITIS
     Route: 065

REACTIONS (5)
  - HYPOTENSION [None]
  - DYSPNOEA [None]
  - PALPITATIONS [None]
  - UNDERDOSE [None]
  - LOSS OF CONSCIOUSNESS [None]
